FAERS Safety Report 11630588 (Version 3)
Quarter: 2015Q4

REPORT INFORMATION
  Report Type: Spontaneous
  Country: SA (occurrence: SA)
  Receive Date: 20151014
  Receipt Date: 20151120
  Transmission Date: 20160304
  Serious: Yes (Death)
  Sender: FDA-Public Use
  Company Number: SA-ALEXION PHARMACEUTICALS INC-A201503946

PATIENT
  Age: 1 Year
  Sex: Male
  Weight: 9 kg

DRUGS (3)
  1. SOLIRIS [Suspect]
     Active Substance: ECULIZUMAB
     Indication: HAEMOLYTIC URAEMIC SYNDROME
     Dosage: 1 VIAL
     Route: 042
     Dates: start: 20150205
  2. SOLIRIS [Suspect]
     Active Substance: ECULIZUMAB
     Dosage: 1 VIAL
     Route: 042
     Dates: start: 20150212
  3. SOLIRIS [Suspect]
     Active Substance: ECULIZUMAB
     Dosage: 1 VIAL EVERY THREE WEEKS
     Route: 042
     Dates: start: 20150305, end: 20151001

REACTIONS (1)
  - Congenital anomaly [Fatal]
